FAERS Safety Report 6024791-1 (Version None)
Quarter: 2008Q4

REPORT INFORMATION
  Report Type: 
  Country: None (occurrence: None)
  Receive Date: 20081231
  Receipt Date: 20081223
  Transmission Date: 20090506
  Serious: Yes (Hospitalization)
  Sender: FDA-Public Use
  Company Number: US-JNJFOC-20081002113

PATIENT
  Sex: Male
  Weight: 36.7 kg

DRUGS (6)
  1. REMICADE [Suspect]
     Route: 042
  2. REMICADE [Suspect]
     Indication: CROHN'S DISEASE
     Route: 042
  3. ADVAIR DISKUS 250/50 [Concomitant]
     Indication: ASTHMA
     Route: 055
  4. SULFASALAZINE [Concomitant]
  5. FOLIC ACID [Concomitant]
  6. PRILOSEC [Concomitant]

REACTIONS (1)
  - MENINGITIS [None]
